FAERS Safety Report 7934038-4 (Version None)
Quarter: 2011Q4

REPORT INFORMATION
  Report Type: 
  Country: None (occurrence: None)
  Receive Date: 20111122
  Receipt Date: 20111117
  Transmission Date: 20120403
  Serious: Yes (Other)
  Sender: FDA-Public Use
  Company Number: GB-ROCHE-666007

PATIENT
  Sex: Female
  Weight: 59.4 kg

DRUGS (3)
  1. RAMIPRIL [Concomitant]
  2. BENDROFLUMETHIAZIDE [Concomitant]
  3. AVASTIN [Suspect]
     Indication: BREAST CANCER
     Dosage: FORM REPORTED INFUSION. UNSPECIFIED DATE, INTRRUPTED AND ON 18 JAN 2010, DISCONTINUED PERMANENTLY.
     Route: 042
     Dates: start: 20090220, end: 20100118

REACTIONS (1)
  - ELECTROCARDIOGRAM QT PROLONGED [None]
